FAERS Safety Report 5074647-6 (Version None)
Quarter: 2006Q3

REPORT INFORMATION
  Report Type: 
  Country: None (occurrence: None)
  Receive Date: 20060803
  Receipt Date: 20060730
  Transmission Date: 20061208
  Serious: Yes (Other)
  Sender: FDA-Public Use
  Company Number: 2006092464

PATIENT
  Sex: Male

DRUGS (1)
  1. DRAMAMINE [Suspect]
     Indication: INTENTIONAL OVERDOSE
     Dosage: 10 TABLETS ONCE, ORAL
     Route: 048
     Dates: start: 20060730, end: 20060730

REACTIONS (2)
  - ABDOMINAL PAIN UPPER [None]
  - INTENTIONAL OVERDOSE [None]
